FAERS Safety Report 7155751-5 (Version None)
Quarter: 2010Q4

REPORT INFORMATION
  Report Type: 
  Country: None (occurrence: None)
  Receive Date: 20101123
  Receipt Date: 20100907
  Transmission Date: 20110411
  Serious: No
  Sender: FDA-Public Use
  Company Number: 004908

PATIENT
  Sex: Male

DRUGS (3)
  1. CIMZIA [Suspect]
     Indication: CROHN'S DISEASE
     Dosage: SUBCUTANEOUS, 400 MG 1X/28 DAYS SUBCUTANEOUS
     Route: 058
     Dates: start: 20081212
  2. CIMZIA [Suspect]
     Indication: CROHN'S DISEASE
     Dosage: SUBCUTANEOUS, 400 MG 1X/28 DAYS SUBCUTANEOUS
     Route: 058
     Dates: start: 20100906
  3. CIMZIA [Suspect]

REACTIONS (6)
  - FREQUENT BOWEL MOVEMENTS [None]
  - HAEMATOCHEZIA [None]
  - INAPPROPRIATE SCHEDULE OF DRUG ADMINISTRATION [None]
  - INJECTION SITE ERYTHEMA [None]
  - INJECTION SITE PRURITUS [None]
  - INJECTION SITE SWELLING [None]
